FAERS Safety Report 21191471 (Version 3)
Quarter: 2022Q3

REPORT INFORMATION
  Report Type: Spontaneous
  Country: JP (occurrence: JP)
  Receive Date: 20220809
  Receipt Date: 20220901
  Transmission Date: 20221027
  Serious: Yes (Other)
  Sender: FDA-Public Use
  Company Number: JP-BAXTER-2022BAX016973

PATIENT
  Age: 3 Year
  Sex: Female

DRUGS (1)
  1. DOXORUBICIN [Suspect]
     Active Substance: DOXORUBICIN
     Dosage: 12.857 MG/M2,1X4WEEKS
     Route: 042

REACTIONS (5)
  - Cardiomyopathy [Recovering/Resolving]
  - Asthenia [Recovering/Resolving]
  - Oedema [Recovering/Resolving]
  - Cough [Recovering/Resolving]
  - Diarrhoea [Recovering/Resolving]
